FAERS Safety Report 17736938 (Version 1)
Quarter: 2020Q2

REPORT INFORMATION
  Report Type: Report from Study
  Country: KR (occurrence: KR)
  Receive Date: 20200502
  Receipt Date: 20200502
  Transmission Date: 20200714
  Serious: Yes (Other)
  Sender: FDA-Public Use
  Company Number: KR-ROCHE-2545542

PATIENT
  Age: 48 Year
  Sex: Female

DRUGS (37)
  1. PREPENEM [Concomitant]
     Dosage: 1 VIAL
     Route: 042
     Dates: start: 20200116, end: 20200116
  2. AMIKACIN SULFATE. [Concomitant]
     Active Substance: AMIKACIN SULFATE
     Indication: PNEUMONIA
     Route: 042
     Dates: start: 20200115, end: 20200202
  3. AVELOX [Concomitant]
     Active Substance: MOXIFLOXACIN HYDROCHLORIDE
     Indication: PNEUMONIA
     Route: 042
     Dates: start: 20200128, end: 20200202
  4. FRAGMIN [Concomitant]
     Active Substance: DALTEPARIN SODIUM
     Dosage: 5000 UNIT NOT REPORTED
     Route: 058
     Dates: start: 20200122, end: 20200122
  5. VANCOMYCIN [Concomitant]
     Active Substance: VANCOMYCIN
     Indication: PNEUMONIA
     Route: 042
     Dates: start: 20200127, end: 20200127
  6. CLARI [Concomitant]
     Indication: PNEUMONIA
     Route: 048
     Dates: start: 20200115, end: 20200126
  7. TRASTUZUMAB. [Suspect]
     Active Substance: TRASTUZUMAB
     Indication: BREAST CANCER
     Route: 042
     Dates: start: 20200101, end: 20200101
  8. AMBROXOL [Concomitant]
     Active Substance: AMBROXOL
     Indication: DYSPNOEA
     Route: 042
     Dates: start: 20191227, end: 20200203
  9. ATROVENT UDV [Concomitant]
     Active Substance: IPRATROPIUM BROMIDE
     Indication: DYSPNOEA
     Route: 065
     Dates: start: 20191227, end: 20200203
  10. MAGO [MAGNESIUM OXIDE] [Concomitant]
     Route: 048
     Dates: start: 20200106, end: 20200126
  11. LEVOFLOXACIN. [Concomitant]
     Active Substance: LEVOFLOXACIN
     Indication: PNEUMONIA
     Route: 042
     Dates: start: 20200106, end: 20200113
  12. MUCOMYST [ACETYLCYSTEINE] [Concomitant]
     Indication: DYSPNOEA
     Route: 050
     Dates: start: 20200101, end: 20200109
  13. PERTUZUMAB. [Suspect]
     Active Substance: PERTUZUMAB
     Indication: BREAST CANCER
     Route: 065
     Dates: start: 20200101
  14. VANCOMYCIN [Concomitant]
     Active Substance: VANCOMYCIN
     Route: 042
     Dates: start: 20200128, end: 20200129
  15. METHYSOL [Concomitant]
     Indication: PNEUMONIA
     Route: 042
     Dates: start: 20200111, end: 20200115
  16. PERTUZUMAB. [Suspect]
     Active Substance: PERTUZUMAB
     Route: 065
     Dates: start: 20200121
  17. PREPENEM [Concomitant]
     Dosage: 1 VIAL
     Route: 042
     Dates: start: 20200117, end: 20200203
  18. METHYSOL [Concomitant]
     Route: 042
     Dates: start: 20200121
  19. CORDARONE [Concomitant]
     Active Substance: AMIODARONE HYDROCHLORIDE
     Route: 048
     Dates: start: 20200110, end: 20200116
  20. URSA [Concomitant]
     Active Substance: URSODIOL
     Route: 048
     Dates: start: 20200123, end: 20200126
  21. MEROPEN [MEROPENEM] [Concomitant]
     Active Substance: MEROPENEM
     Indication: PNEUMONIA
     Route: 042
     Dates: start: 20200106, end: 20200115
  22. TRASTUZUMAB. [Suspect]
     Active Substance: TRASTUZUMAB
     Route: 042
     Dates: start: 20200121, end: 20200121
  23. METHYSOL [Concomitant]
     Route: 042
     Dates: start: 20200116, end: 20200120
  24. GODEX [ADENINE HYDROCHLORIDE;BIFENDATE;CARNITINE OROTATE;CYANOCOBALAMI [Concomitant]
     Dosage: 1 CAPSULE
     Route: 048
     Dates: start: 20200123, end: 20200123
  25. DOCETAXEL. [Suspect]
     Active Substance: DOCETAXEL
     Indication: BREAST CANCER
     Dosage: SUBSEQUENT DOSE RECEIVED ON 21/JAN/2020.
     Route: 042
     Dates: start: 20191228
  26. PANTOLOC [PANTOPRAZOLE] [Concomitant]
     Active Substance: PANTOPRAZOLE SODIUM
     Route: 042
     Dates: start: 20191227, end: 20200203
  27. CALCIUM GLUCONATE. [Concomitant]
     Active Substance: CALCIUM GLUCONATE
     Indication: HYPOCALCAEMIA
     Route: 042
     Dates: start: 20200106, end: 20200202
  28. COTRIM [Concomitant]
     Active Substance: SULFAMETHOXAZOLE\TRIMETHOPRIM
     Indication: PNEUMONIA
     Route: 042
     Dates: start: 20200108, end: 20200128
  29. CRAVIT [Concomitant]
     Active Substance: LEVOFLOXACIN
     Indication: PNEUMONIA
     Route: 042
     Dates: start: 20200118, end: 20200128
  30. ENTELON [Concomitant]
     Route: 048
     Dates: start: 20200108, end: 20200126
  31. CORDARONE [Concomitant]
     Active Substance: AMIODARONE HYDROCHLORIDE
     Route: 048
     Dates: start: 20200117, end: 20200126
  32. ULTRACET [Concomitant]
     Active Substance: ACETAMINOPHEN\TRAMADOL HYDROCHLORIDE
     Indication: BREAST CANCER
     Dosage: 1 TABLET
     Route: 048
     Dates: start: 20191228, end: 20200109
  33. PREPENEM [Concomitant]
     Indication: PNEUMONIA
     Dosage: 1 VIAL
     Route: 042
     Dates: start: 20200115, end: 20200115
  34. ZYVOX [Concomitant]
     Active Substance: LINEZOLID
     Indication: PNEUMONIA
     Route: 042
     Dates: start: 20200129, end: 20200203
  35. METHYSOL [Concomitant]
     Route: 042
     Dates: start: 20200121, end: 20200127
  36. FRAGMIN [Concomitant]
     Active Substance: DALTEPARIN SODIUM
     Dosage: 5000 UNIT NOT REPORTED
     Route: 065
     Dates: start: 20200124, end: 20200125
  37. LONQUEX [Concomitant]
     Active Substance: LIPEGFILGRASTIM
     Route: 058
     Dates: start: 20200122, end: 20200122

REACTIONS (3)
  - Platelet count decreased [Recovered/Resolved]
  - Gastric haemorrhage [Not Recovered/Not Resolved]
  - Neutrophil count decreased [Recovered/Resolved]

NARRATIVE: CASE EVENT DATE: 20200126
